FAERS Safety Report 4718223-0 (Version None)
Quarter: 2005Q3

REPORT INFORMATION
  Report Type: 
  Country: None (occurrence: None)
  Receive Date: 20050718
  Receipt Date: 20050114
  Transmission Date: 20060218
  Serious: No
  Sender: FDA-Public Use
  Company Number: 2005000159

PATIENT
  Age: 81 Year
  Sex: Male

DRUGS (1)
  1. TARCEVA [Suspect]
     Indication: NON-SMALL CELL LUNG CANCER
     Dosage: 150MG, ORAL
     Route: 048
     Dates: start: 20041227, end: 20050110

REACTIONS (6)
  - COUGH [None]
  - DIARRHOEA [None]
  - DYSPNOEA [None]
  - FATIGUE [None]
  - PYREXIA [None]
  - RASH [None]
